FAERS Safety Report 13699892 (Version 13)
Quarter: 2019Q2

REPORT INFORMATION
  Report Type: Spontaneous
  Country: FR (occurrence: FR)
  Receive Date: 20170629
  Receipt Date: 20190430
  Transmission Date: 20190711
  Serious: Yes (Hospitalization, Other)
  Sender: FDA-Public Use
  Company Number: FR-BIOGEN-2013BI079182

PATIENT
  Age: 44 Year
  Sex: Male

DRUGS (14)
  1. FAMPYRA [Suspect]
     Active Substance: DALFAMPRIDINE
     Indication: SECONDARY PROGRESSIVE MULTIPLE SCLEROSIS
     Route: 050
     Dates: start: 20130805, end: 20130808
  2. FAMPYRA [Suspect]
     Active Substance: DALFAMPRIDINE
     Route: 050
  3. ENDOXAN [Concomitant]
     Active Substance: CYCLOPHOSPHAMIDE
     Indication: PRODUCT USED FOR UNKNOWN INDICATION
     Route: 050
  4. LIORESAL [Concomitant]
     Active Substance: BACLOFEN
     Indication: PRODUCT USED FOR UNKNOWN INDICATION
     Route: 050
  5. CYCLOPHOSPHAMIDE. [Concomitant]
     Active Substance: CYCLOPHOSPHAMIDE
     Indication: SECONDARY PROGRESSIVE MULTIPLE SCLEROSIS
     Route: 050
     Dates: start: 2012, end: 2014
  6. FAMPYRA [Suspect]
     Active Substance: DALFAMPRIDINE
     Dosage: TID
     Route: 050
  7. FAMPYRA [Suspect]
     Active Substance: DALFAMPRIDINE
     Route: 050
  8. BACLOFEN. [Suspect]
     Active Substance: BACLOFEN
     Dosage: TAPERED DOWN
     Route: 050
  9. BACLOFEN. [Suspect]
     Active Substance: BACLOFEN
     Route: 065
  10. DAL (DALFAMPRIDINE) [Suspect]
     Active Substance: DALFAMPRIDINE
     Indication: MULTIPLE SCLEROSIS
     Route: 065
  11. BACLOFEN. [Suspect]
     Active Substance: BACLOFEN
     Dosage: UNKNOWN
     Route: 050
  12. DALFAMPRIDINE. [Suspect]
     Active Substance: DALFAMPRIDINE
     Indication: MULTIPLE SCLEROSIS
     Route: 065
  13. BACLOFEN. [Suspect]
     Active Substance: BACLOFEN
     Indication: SECONDARY PROGRESSIVE MULTIPLE SCLEROSIS
     Route: 050
     Dates: start: 201106
  14. MELATONIN [Concomitant]
     Active Substance: MELATONIN
     Indication: PRODUCT USED FOR UNKNOWN INDICATION
     Route: 050

REACTIONS (12)
  - Status epilepticus [Recovered/Resolved]
  - Status epilepticus [Recovered/Resolved]
  - Altered state of consciousness [Recovered/Resolved]
  - Generalised tonic-clonic seizure [Recovered/Resolved]
  - Cerebellar syndrome [Unknown]
  - Bladder disorder [Unknown]
  - Drug interaction [Recovered/Resolved]
  - Central nervous system lesion [Unknown]
  - Myoclonus [Unknown]
  - Partial seizures with secondary generalisation [Recovered/Resolved]
  - Cerebral atrophy [Unknown]
  - Paraparesis [Unknown]

NARRATIVE: CASE EVENT DATE: 20130808
